FAERS Safety Report 8457026-0 (Version None)
Quarter: 2012Q2

REPORT INFORMATION
  Report Type: 
  Country: None (occurrence: None)
  Receive Date: 20120621
  Receipt Date: 20120608
  Transmission Date: 20120825
  Serious: Yes (Hospitalization, Congenital Anomaly)
  Sender: FDA-Public Use
  Company Number: DE-MYLANLABS-2012S1011741

PATIENT
  Age: 0 Year
  Sex: Female
  Weight: 2.93 kg

DRUGS (3)
  1. LEVOTHYROXINE SODIUM [Concomitant]
     Route: 064
  2. FOLIC ACID [Concomitant]
     Indication: PROPHYLAXIS OF NEURAL TUBE DEFECT
     Route: 064
  3. METFORMIN HCL [Suspect]
     Dosage: 1500 [MG/D ]
     Route: 064

REACTIONS (5)
  - PATENT DUCTUS ARTERIOSUS [None]
  - CONGENITAL DIAPHRAGMATIC HERNIA [None]
  - DEXTROCARDIA [None]
  - PULMONARY HYPOPLASIA [None]
  - MATERNAL EXPOSURE DURING PREGNANCY [None]
